FAERS Safety Report 25503315 (Version 1)
Quarter: 2025Q3

REPORT INFORMATION
  Report Type: Spontaneous
  Country: US (occurrence: US)
  Receive Date: 20250702
  Receipt Date: 20250702
  Transmission Date: 20251020
  Serious: No
  Sender: ROCHE
  Company Number: US-ROCHE-10000323059

PATIENT
  Sex: Female
  Weight: 83.91 kg

DRUGS (2)
  1. ACTEMRA ACTPEN [Suspect]
     Active Substance: TOCILIZUMAB
     Indication: Giant cell arteritis
     Route: 058
     Dates: start: 202502
  2. TARGRETIN [Concomitant]
     Active Substance: BEXAROTENE

REACTIONS (2)
  - Hyperhidrosis [Unknown]
  - Memory impairment [Unknown]
